FAERS Safety Report 10434114 (Version 1)
Quarter: 2014Q3

REPORT INFORMATION
  Report Type: Spontaneous
  Country: US (occurrence: US)
  Receive Date: 20140905
  Receipt Date: 20140905
  Transmission Date: 20150326
  Serious: No
  Sender: FDA-Public Use
  Company Number: US-009507513-1409USA002746

PATIENT
  Age: 58 Year
  Sex: Female

DRUGS (1)
  1. OXYTROL FOR WOMEN [Suspect]
     Active Substance: OXYBUTYNIN
     Indication: MICTURITION DISORDER
     Dosage: UNK, UNKNOWN
     Route: 062

REACTIONS (4)
  - Back pain [Unknown]
  - Arthralgia [Unknown]
  - Product quality issue [Unknown]
  - Drug ineffective [Unknown]
